FAERS Safety Report 16961104 (Version 2)
Quarter: 2020Q4

REPORT INFORMATION
  Report Type: Spontaneous
  Country: PL (occurrence: PL)
  Receive Date: 20191025
  Receipt Date: 20201006
  Transmission Date: 20210113
  Serious: Yes (Hospitalization)
  Sender: FDA-Public Use
  Company Number: PL-BAUSCH-BL-2019-058436

PATIENT
  Sex: Female

DRUGS (20)
  1. DEXAMETHASONE. [Suspect]
     Active Substance: DEXAMETHASONE
     Indication: DERMATITIS ATOPIC
     Route: 061
  2. AZATHIOPRINE. [Suspect]
     Active Substance: AZATHIOPRINE
     Indication: DERMATITIS ATOPIC
     Dosage: INITIALLY WITHDRAWN AND THEREAFTER RE-INTRODUCED AND FINALLY WITHDRAWN
     Route: 065
  3. CICLOSPORIN [Suspect]
     Active Substance: CYCLOSPORINE
     Indication: DERMATITIS ATOPIC
     Dosage: DOSE WAS INCREASED THEREAFTER
     Route: 065
  4. DEXAMETHASONE. [Suspect]
     Active Substance: DEXAMETHASONE
     Indication: DERMATITIS ATOPIC
     Dosage: AT LIMITING DOSES
     Route: 065
  5. CICLOSPORIN [Suspect]
     Active Substance: CYCLOSPORINE
     Dosage: 300 MILLIGRAM DAILY; 200 MG IN THE MORNING PLUS 100 MG IN THE EVENING
     Route: 065
  6. RANITIDINE. [Concomitant]
     Active Substance: RANITIDINE
     Indication: PRODUCT USED FOR UNKNOWN INDICATION
     Route: 065
  7. CLEMASTINE [Concomitant]
     Active Substance: CLEMASTINE
     Indication: DERMATITIS ATOPIC
     Route: 065
  8. BILASTINE [Concomitant]
     Active Substance: BILASTINE
     Indication: DERMATITIS ATOPIC
     Route: 065
  9. FLUOCINOLONE ACETONIDE. [Suspect]
     Active Substance: FLUOCINOLONE ACETONIDE
     Indication: DERMATITIS ATOPIC
     Route: 061
  10. FEXOFENADINE [Concomitant]
     Active Substance: FEXOFENADINE HYDROCHLORIDE
     Indication: DERMATITIS ATOPIC
     Dosage: 2 DOSAGE FORMS DAILY; 1 DOSAGE FORM-1 TABLET
     Route: 065
  11. LOCOID [Suspect]
     Active Substance: HYDROCORTISONE BUTYRATE
     Indication: DERMATITIS ATOPIC
     Route: 061
  12. METFORMIN [Concomitant]
     Active Substance: METFORMIN HYDROCHLORIDE
     Indication: PRODUCT USED FOR UNKNOWN INDICATION
     Route: 065
  13. VENLAFAXINE [Concomitant]
     Active Substance: VENLAFAXINE HYDROCHLORIDE
     Indication: DERMATITIS ATOPIC
     Route: 065
  14. CEFOTAXIME [Concomitant]
     Active Substance: CEFOTAXIME SODIUM
     Indication: DERMATITIS ATOPIC
     Route: 065
  15. HYDROCORTISONE. [Suspect]
     Active Substance: HYDROCORTISONE
     Indication: DERMATITIS ATOPIC
     Route: 061
  16. NEOMYCIN. [Concomitant]
     Active Substance: NEOMYCIN
     Indication: DERMATITIS ATOPIC
     Route: 061
  17. ERYTHROMYCIN. [Concomitant]
     Active Substance: ERYTHROMYCIN
     Indication: DERMATITIS ATOPIC
     Route: 061
  18. NATAMYCIN [Concomitant]
     Active Substance: NATAMYCIN
     Indication: DERMATITIS ATOPIC
     Route: 061
  19. ZINC. [Concomitant]
     Active Substance: ZINC
     Indication: DERMATITIS ATOPIC
     Route: 061
  20. HYDROXYZINE [Concomitant]
     Active Substance: HYDROXYZINE HYDROCHLORIDE
     Indication: DERMATITIS ATOPIC
     Dosage: AS NEEDED
     Route: 065

REACTIONS (11)
  - Staphylococcal skin infection [Recovering/Resolving]
  - Blood creatinine increased [Unknown]
  - Blood glucose increased [Unknown]
  - Dermatitis atopic [Recovering/Resolving]
  - Oedema peripheral [Recovering/Resolving]
  - Generalised oedema [Recovering/Resolving]
  - Dyspnoea [Unknown]
  - Leukopenia [Unknown]
  - Hypertension [Recovering/Resolving]
  - Blood smear test abnormal [Unknown]
  - Fatigue [Recovering/Resolving]
